FAERS Safety Report 8949775 (Version 1)
Quarter: 2012Q4

REPORT INFORMATION
  Report Type: 
  Country: US (occurrence: US)
  Receive Date: 20121206
  Receipt Date: 20121206
  Transmission Date: 20130627
  Serious: No
  Sender: FDA-Public Use
  Company Number: US-PFIZER INC-2012306469

PATIENT
  Sex: Female
  Weight: 85.71 kg

DRUGS (4)
  1. NEURONTIN [Suspect]
     Indication: NEUROPATHY
     Dosage: 300 mg, 3x/day
  2. NEURONTIN [Suspect]
     Indication: REFLEX SYMPATHETIC DYSTROPHY
  3. OXYCONTIN [Concomitant]
     Indication: NERVE PAIN
     Dosage: 80 mg, 4x/day
  4. OXYCODONE [Concomitant]
     Indication: NERVE PAIN
     Dosage: 30 mg, as needed

REACTIONS (1)
  - Drug ineffective [Unknown]
